FAERS Safety Report 17492000 (Version 2)
Quarter: 2020Q2

REPORT INFORMATION
  Report Type: Report from Study
  Country: BR (occurrence: BR)
  Receive Date: 20200303
  Receipt Date: 20200427
  Transmission Date: 20200713
  Serious: Yes (Death)
  Sender: FDA-Public Use
  Company Number: BR-JNJFOC-20200301680

PATIENT
  Sex: Female

DRUGS (1)
  1. STELARA [Suspect]
     Active Substance: USTEKINUMAB
     Indication: PRODUCT USED FOR UNKNOWN INDICATION
     Dosage: ALSO REPORTED END OF AUGUST OR BEGINNING OF SEPTEMBER- STELARA STARTED
     Route: 058
     Dates: start: 201909, end: 201910

REACTIONS (1)
  - Bile duct cancer [Fatal]

NARRATIVE: CASE EVENT DATE: 2019
